FAERS Safety Report 24015849 (Version 1)
Quarter: 2024Q2

REPORT INFORMATION
  Report Type: Spontaneous
  Country: CN (occurrence: CN)
  Receive Date: 20240626
  Receipt Date: 20240626
  Transmission Date: 20240715
  Serious: Yes (Other)
  Sender: FDA-Public Use
  Company Number: CN-ABBVIE-5813296

PATIENT
  Age: 22 Year
  Sex: Male

DRUGS (1)
  1. UPADACITINIB [Suspect]
     Active Substance: UPADACITINIB
     Indication: Crohn^s disease
     Dosage: 45 MILLIGRAM?DURATION TEXT: MORE THAN 2 MONTHS
     Route: 048

REACTIONS (1)
  - Large intestine perforation [Unknown]
